FAERS Safety Report 15968797 (Version 1)
Quarter: 2019Q1

REPORT INFORMATION
  Report Type: Spontaneous
  Country: CA (occurrence: CA)
  Receive Date: 20190215
  Receipt Date: 20190215
  Transmission Date: 20190418
  Serious: Yes (Life-Threatening, Other)
  Sender: FDA-Public Use
  Company Number: CA-PFIZER INC-2019065256

PATIENT
  Age: 55 Year
  Sex: Female
  Weight: 75.74 kg

DRUGS (1)
  1. CARBOPLATIN. [Suspect]
     Active Substance: CARBOPLATIN
     Indication: OVARIAN CANCER
     Dosage: 426 MG, 1 EVERY 21 DAYS (EVERY 3 WEEKS)
     Route: 042

REACTIONS (7)
  - Chills [Recovered/Resolved]
  - Diarrhoea [Recovered/Resolved]
  - Vomiting [Recovered/Resolved]
  - Dyspnoea [Recovered/Resolved]
  - Flushing [Recovered/Resolved]
  - Tachypnoea [Recovered/Resolved]
  - Nausea [Recovered/Resolved]
